FAERS Safety Report 8882961 (Version 1)
Quarter: 2012Q4

REPORT INFORMATION
  Report Type: 
  Country: US (occurrence: US)
  Receive Date: 20121102
  Receipt Date: 20121102
  Transmission Date: 20130627
  Serious: No
  Sender: FDA-Public Use
  Company Number: US-ASTRAZENECA-2011SE72575

PATIENT
  Sex: Female

DRUGS (5)
  1. CRESTOR [Suspect]
     Indication: BLOOD CHOLESTEROL INCREASED
     Route: 048
  2. CRESTOR [Suspect]
     Indication: BLOOD CHOLESTEROL INCREASED
     Route: 048
  3. LIPITOR [Concomitant]
     Indication: BLOOD CHOLESTEROL INCREASED
  4. ZOCOR [Concomitant]
     Indication: BLOOD CHOLESTEROL INCREASED
  5. WELCOR [Concomitant]
     Indication: BLOOD CHOLESTEROL INCREASED

REACTIONS (16)
  - Pain [Unknown]
  - Flushing [Unknown]
  - Chills [Unknown]
  - Influenza [Unknown]
  - Pelvic pain [Unknown]
  - Back pain [Unknown]
  - Malaise [Unknown]
  - Off label use [Unknown]
  - Muscle spasms [Unknown]
  - Muscle spasms [Unknown]
  - Myalgia [Unknown]
  - Headache [Unknown]
  - Nausea [Unknown]
  - Low density lipoprotein increased [Unknown]
  - Pain in extremity [Unknown]
  - Drug ineffective [Unknown]
